FAERS Safety Report 5221704-7 (Version None)
Quarter: 2007Q1

REPORT INFORMATION
  Report Type: 
  Country: None (occurrence: None)
  Receive Date: 20070129
  Receipt Date: 20070124
  Transmission Date: 20070707
  Serious: No
  Sender: FDA-Public Use
  Company Number: US-RB-004846-07

PATIENT
  Sex: Female

DRUGS (4)
  1. SUBUTEX [Suspect]
     Route: 060
     Dates: start: 20070124
  2. SUBOXONE [Suspect]
     Route: 060
     Dates: start: 20061226, end: 20070101
  3. SUBOXONE [Suspect]
     Route: 060
     Dates: start: 20070102, end: 20070115
  4. SUBOXONE [Suspect]
     Route: 060
     Dates: start: 20070120, end: 20070123

REACTIONS (2)
  - DRUG DEPENDENCE [None]
  - DRUG EXPOSURE DURING PREGNANCY [None]
